FAERS Safety Report 4732514-9 (Version None)
Quarter: 2005Q3

REPORT INFORMATION
  Report Type: 
  Country: None (occurrence: None)
  Receive Date: 20050803
  Receipt Date: 19981221
  Transmission Date: 20060218
  Serious: Yes (Hospitalization, Other)
  Sender: FDA-Public Use
  Company Number: ES-GLAXOSMITHKLINE-B0218546A

PATIENT
  Age: 17 Year
  Sex: Female

DRUGS (3)
  1. PAROXETINE [Suspect]
     Dosage: 280MG PER DAY
  2. THEODRENALINE HYDROCHLORIDE [Suspect]
     Dosage: 5MG UNKNOWN
  3. PHLEBOTONIC DRUG NOS [Suspect]
     Route: 065

REACTIONS (7)
  - APHASIA [None]
  - CEREBRAL ARTERY OCCLUSION [None]
  - CEREBRAL ARTERY THROMBOSIS [None]
  - CEREBRAL INFARCTION [None]
  - ISCHAEMIC STROKE [None]
  - MULTIPLE DRUG OVERDOSE [None]
  - OVERDOSE [None]
